FAERS Safety Report 8821650 (Version 1)
Quarter: 2012Q4

REPORT INFORMATION
  Report Type: 
  Country: US (occurrence: US)
  Receive Date: 20121002
  Receipt Date: 20121002
  Transmission Date: 20130627
  Serious: No
  Sender: FDA-Public Use
  Company Number: US-VERTEX PHARMACEUTICAL INC.-2012-020658

PATIENT
  Sex: Male
  Weight: 113 kg

DRUGS (3)
  1. VX-950 [Suspect]
     Indication: HEPATITIS C
     Dosage: 750 mg, tid
     Dates: start: 2011
  2. PEGASYS [Concomitant]
     Indication: HEPATITIS C
     Dosage: 180 ?g, UNK
     Route: 058
     Dates: start: 20111109, end: 20120808
  3. RIBASPHERE [Concomitant]
     Indication: HEPATITIS C
     Dosage: 600 mg, bid
     Dates: start: 20111009, end: 20120808

REACTIONS (5)
  - Depression [Unknown]
  - Anxiety [Unknown]
  - Mood altered [Unknown]
  - Fatigue [Recovered/Resolved]
  - Anorectal disorder [Recovered/Resolved]
